FAERS Safety Report 7432781-7 (Version None)
Quarter: 2011Q2

REPORT INFORMATION
  Report Type: 
  Country: None (occurrence: None)
  Receive Date: 20110422
  Receipt Date: 20110414
  Transmission Date: 20111010
  Serious: Yes (Disabling)
  Sender: FDA-Public Use
  Company Number: B0714038A

PATIENT
  Sex: Male
  Weight: 66 kg

DRUGS (21)
  1. TACROLIMUS HYDRATE [Concomitant]
     Indication: IMMUNOSUPPRESSION
     Dosage: 2MG PER DAY
     Route: 065
     Dates: start: 20090601, end: 20090604
  2. METHOTREXATE [Concomitant]
     Indication: IMMUNOSUPPRESSION
     Dosage: 15MG PER DAY
     Route: 065
     Dates: start: 20090603, end: 20090603
  3. METHOTREXATE [Concomitant]
     Dosage: 11MG PER DAY
     Route: 065
     Dates: start: 20090608, end: 20090608
  4. FUNGUARD [Concomitant]
     Dosage: 50MG PER DAY
     Route: 042
     Dates: start: 20090519, end: 20090717
  5. FLUDARA [Concomitant]
     Indication: ALLOGENIC BONE MARROW TRANSPLANTATION THERAPY
     Dosage: 39MG PER DAY
     Route: 042
     Dates: start: 20090525, end: 20090529
  6. TACROLIMUS HYDRATE [Concomitant]
     Dosage: 10MG PER DAY
     Route: 048
     Dates: start: 20090801, end: 20090807
  7. TACROLIMUS HYDRATE [Concomitant]
     Dosage: 5MG PER DAY
     Route: 065
     Dates: start: 20090605, end: 20090709
  8. TACROLIMUS HYDRATE [Concomitant]
     Dosage: 7MG PER DAY
     Route: 048
     Dates: start: 20090723, end: 20090731
  9. METHOTREXATE [Concomitant]
     Dosage: 11MG PER DAY
     Route: 065
     Dates: start: 20090605, end: 20090605
  10. ALKERAN [Suspect]
     Indication: ALLOGENIC BONE MARROW TRANSPLANTATION THERAPY
     Dosage: 108MG PER DAY
     Route: 042
     Dates: start: 20090530, end: 20090531
  11. URSO 250 [Concomitant]
     Dosage: 600MG PER DAY
     Route: 048
     Dates: start: 20090519, end: 20090616
  12. PREDONINE [Suspect]
     Dosage: 20MG PER DAY
     Route: 042
     Dates: start: 20090629, end: 20090713
  13. TACROLIMUS HYDRATE [Concomitant]
     Dosage: 4.4MG PER DAY
     Route: 048
     Dates: start: 20090713, end: 20090716
  14. TACROLIMUS HYDRATE [Concomitant]
     Dosage: 4MG PER DAY
     Route: 048
     Dates: start: 20090808
  15. NEO-MINOPHAGEN-C [Concomitant]
     Dosage: 40ML PER DAY
     Route: 042
     Dates: start: 20090519, end: 20090811
  16. TACROLIMUS HYDRATE [Concomitant]
     Dosage: 4MG PER DAY
     Route: 048
     Dates: start: 20090717, end: 20090720
  17. ZOVIRAX [Concomitant]
     Dosage: 1000MG PER DAY
     Route: 048
     Dates: start: 20090526, end: 20090605
  18. TACROLIMUS HYDRATE [Concomitant]
     Dosage: 2MG PER DAY
     Route: 065
     Dates: start: 20090710, end: 20090712
  19. METHOTREXATE [Concomitant]
     Dosage: 11MG PER DAY
     Route: 065
     Dates: start: 20090613, end: 20090613
  20. HEPARIN SODIUM 1,000 UNITS IN SODIUM CHLORIDE 0.9% [Concomitant]
     Dosage: 5IU3 PER DAY
     Route: 042
     Dates: start: 20090524, end: 20090622
  21. TAKEPRON [Concomitant]
     Dosage: 15MG PER DAY
     Route: 048
     Dates: start: 20090521, end: 20090831

REACTIONS (1)
  - GLUCOSE TOLERANCE IMPAIRED [None]
